FAERS Safety Report 9536083 (Version 1)
Quarter: 2013Q2

REPORT INFORMATION
  Report Type: Spontaneous
  Country: US (occurrence: None)
  Receive Date: 20130507
  Receipt Date: 20130507
  Transmission Date: 20140414
  Serious: No
  Sender: FDA-Public Use
  Company Number: PHEH2012US024253

PATIENT
  Sex: Female

DRUGS (1)
  1. AFINITOR (RAD) UNKNOWN [Suspect]
     Indication: BREAST CANCER
     Dosage: UNK, ORAL
     Route: 048
     Dates: start: 20120912, end: 201211

REACTIONS (3)
  - Pain in jaw [None]
  - Stomatitis [None]
  - Chest pain [None]
